FAERS Safety Report 5710110-4 (Version None)
Quarter: 2008Q2

REPORT INFORMATION
  Report Type: 
  Country: None (occurrence: None)
  Receive Date: 20080418
  Receipt Date: 20071119
  Transmission Date: 20081010
  Serious: No
  Sender: FDA-Public Use
  Company Number: US-ASTRAZENECA-2007UW26713

PATIENT
  Age: 22327 Day
  Sex: Male
  Weight: 90.7 kg

DRUGS (7)
  1. TOPROL-XL [Suspect]
     Indication: HYPERTENSION
     Route: 048
     Dates: start: 20071101
  2. TOPROL-XL [Suspect]
     Route: 048
     Dates: start: 20071115
  3. PRILOSEC [Concomitant]
  4. ACTOS [Concomitant]
  5. QUINAPRIL [Concomitant]
  6. LIPITOR [Concomitant]
  7. ASPIRIN [Concomitant]

REACTIONS (3)
  - HYPOAESTHESIA [None]
  - PAIN [None]
  - PAIN IN EXTREMITY [None]
